FAERS Safety Report 7239415-5 (Version None)
Quarter: 2011Q1

REPORT INFORMATION
  Report Type: 
  Country: None (occurrence: None)
  Receive Date: 20110121
  Receipt Date: 20101210
  Transmission Date: 20110831
  Serious: Yes (Death, Other)
  Sender: FDA-Public Use
  Company Number: PHHY2010NL90493

PATIENT
  Sex: Female

DRUGS (1)
  1. ZOMETA [Suspect]
     Indication: LUNG CANCER METASTATIC
     Dosage: 4 MG
     Dates: start: 20101110, end: 20101210

REACTIONS (4)
  - BRAIN NEOPLASM [None]
  - FALL [None]
  - SOMNOLENCE [None]
  - NEOPLASM MALIGNANT [None]
